FAERS Safety Report 4297587-9 (Version None)
Quarter: 2004Q1

REPORT INFORMATION
  Report Type: 
  Country: None (occurrence: None)
  Receive Date: 20040126
  Receipt Date: 20031104
  Transmission Date: 20041129
  Serious: No
  Sender: FDA-Public Use
  Company Number: USA031151643

PATIENT
  Age: 11 Year
  Sex: Male
  Weight: 36 kg

DRUGS (3)
  1. STRATTERA [Suspect]
     Indication: ATTENTION DEFICIT/HYPERACTIVITY DISORDER
     Dosage: 40 M/IN THE EVENING
     Dates: start: 20031022
  2. CONCERTA [Concomitant]
  3. RITALIN [Concomitant]

REACTIONS (4)
  - DRUG INEFFECTIVE [None]
  - SOMNOLENCE [None]
  - SWELLING FACE [None]
  - THINKING ABNORMAL [None]
